FAERS Safety Report 4292204-6 (Version None)
Quarter: 2004Q1

REPORT INFORMATION
  Report Type: 
  Country: None (occurrence: None)
  Receive Date: 20040126
  Receipt Date: 20031118
  Transmission Date: 20041129
  Serious: No
  Sender: FDA-Public Use
  Company Number: USA031152886

PATIENT
  Age: 74 Year
  Sex: Female

DRUGS (1)
  1. FORTEO [Suspect]
     Indication: OSTEOPOROSIS
     Dates: start: 20031111

REACTIONS (4)
  - DIZZINESS [None]
  - FEELING ABNORMAL [None]
  - FEELING HOT AND COLD [None]
  - TREMOR [None]
